FAERS Safety Report 18754197 (Version 1)
Quarter: 2021Q1

REPORT INFORMATION
  Report Type: Spontaneous
  Country: US (occurrence: US)
  Receive Date: 20210119
  Receipt Date: 20210119
  Transmission Date: 20210419
  Serious: Yes (Hospitalization, Other)
  Sender: FDA-Public Use
  Company Number: US-ROCHE-2749891

PATIENT
  Age: 79 Year
  Sex: Male
  Weight: 63.11 kg

DRUGS (12)
  1. PROGRAF [Concomitant]
     Active Substance: TACROLIMUS
     Dosage: IN THE MORNING
     Dates: start: 2007
  2. TIMOLOL. [Concomitant]
     Active Substance: TIMOLOL
     Indication: PRODUCT USED FOR UNKNOWN INDICATION
     Dosage: 2.5 MG/ML
     Route: 047
  3. CELLCEPT [Suspect]
     Active Substance: MYCOPHENOLATE MOFETIL\MYCOPHENOLATE MOFETIL HYDROCHLORIDE
     Indication: RENAL TRANSPLANT
     Route: 048
     Dates: start: 20070705, end: 202011
  4. CELLCEPT [Suspect]
     Active Substance: MYCOPHENOLATE MOFETIL\MYCOPHENOLATE MOFETIL HYDROCHLORIDE
     Route: 048
     Dates: start: 202011
  5. PROGRAF [Concomitant]
     Active Substance: TACROLIMUS
     Dosage: IN THE EVENING
     Dates: start: 2007
  6. SIMVASTATIN. [Concomitant]
     Active Substance: SIMVASTATIN
     Indication: BLOOD CHOLESTEROL
     Dosage: IN THE EVENING
  7. ALLOPURINOL. [Concomitant]
     Active Substance: ALLOPURINOL
     Indication: GOUT
     Dosage: IN THE MORNING
  8. LOSARTAN. [Concomitant]
     Active Substance: LOSARTAN
     Indication: BLOOD PRESSURE MEASUREMENT
     Dosage: IN THE EVENING
  9. LATANOPROST. [Concomitant]
     Active Substance: LATANOPROST
     Indication: PRODUCT USED FOR UNKNOWN INDICATION
     Dosage: 2.5ML?.005%; 0.005 IN THE EVENING
     Route: 047
  10. METOPROLOL. [Concomitant]
     Active Substance: METOPROLOL
     Indication: BLOOD PRESSURE MEASUREMENT
     Dosage: ONE IN THE MORNING, ONE AT NIGHT
  11. PLAVIX [Concomitant]
     Active Substance: CLOPIDOGREL BISULFATE
     Dosage: IN THE MORNING
  12. FAMOTIDINE. [Concomitant]
     Active Substance: FAMOTIDINE
     Indication: GASTROOESOPHAGEAL REFLUX DISEASE
     Dosage: IN THE EVENING

REACTIONS (11)
  - Spinal pain [Unknown]
  - Urinary tract infection [Unknown]
  - Glaucoma [Unknown]
  - Arrhythmia [Unknown]
  - Weight decreased [Unknown]
  - Cerebrovascular accident [Unknown]
  - Macular degeneration [Unknown]
  - Intentional product use issue [Unknown]
  - Off label use [Unknown]
  - Dysphagia [Unknown]
  - Diarrhoea [Unknown]

NARRATIVE: CASE EVENT DATE: 2019
